FAERS Safety Report 9579345 (Version 1)
Quarter: 2013Q4

REPORT INFORMATION
  Report Type: Spontaneous
  Country: US (occurrence: US)
  Receive Date: 20131001
  Receipt Date: 20131001
  Transmission Date: 20140711
  Serious: No
  Sender: FDA-Public Use
  Company Number: US-AMGEN-USASP2013017367

PATIENT
  Age: 55 Year
  Sex: Male
  Weight: 56.69 kg

DRUGS (7)
  1. ENBREL [Suspect]
     Indication: RHEUMATOID ARTHRITIS
     Dosage: 50 MG, QWK
     Route: 058
  2. METHOTREXATE [Concomitant]
     Dosage: 20 MG, UNK
  3. PLAVIX [Concomitant]
     Dosage: 75 MG, UNK
  4. ASA [Concomitant]
     Dosage: 81 MG, UNK
  5. DIOVAN [Concomitant]
     Dosage: 320 MG, UNK
  6. CRESTOR [Concomitant]
     Dosage: 10 MG, UNK
  7. HUMALOG [Concomitant]
     Dosage: 100/ML

REACTIONS (1)
  - Nodule [Unknown]
